FAERS Safety Report 12089963 (Version 1)
Quarter: 2016Q1

REPORT INFORMATION
  Report Type: Report from Study
  Country: US (occurrence: US)
  Receive Date: 20160218
  Receipt Date: 20160218
  Transmission Date: 20160526
  Serious: Yes (Other)
  Sender: FDA-Public Use
  Company Number: US-BRISTOL-MYERS SQUIBB COMPANY-13664222

PATIENT
  Sex: Female

DRUGS (2)
  1. ETHINYLESTRADIOL W/ETYNODIOL DIACETATE [Concomitant]
     Indication: ORAL CONTRACEPTION
     Route: 048
  2. BELATACEPT [Suspect]
     Active Substance: BELATACEPT
     Indication: PRODUCT USED FOR UNKNOWN INDICATION
     Dosage: UNK
     Route: 042
     Dates: start: 20050405

REACTIONS (2)
  - Pregnancy on oral contraceptive [Unknown]
  - Exposure via body fluid [Unknown]
